FAERS Safety Report 14541782 (Version 1)
Quarter: 2018Q1

REPORT INFORMATION
  Report Type: Spontaneous
  Country: SE (occurrence: SE)
  Receive Date: 20180216
  Receipt Date: 20180216
  Transmission Date: 20180509
  Serious: Yes (Life-Threatening, Hospitalization)
  Sender: FDA-Public Use
  Company Number: SE-TEVA-2018-SE-858071

PATIENT
  Age: 33 Year
  Sex: Male
  Weight: 100 kg

DRUGS (4)
  1. OXASCAND 15 MG TABLETT [Suspect]
     Active Substance: OXAZEPAM
     Indication: AGGRESSION
     Route: 065
  2. OXASCAND 15 MG TABLETT [Suspect]
     Active Substance: OXAZEPAM
     Indication: SOCIAL ANXIETY DISORDER
     Route: 065
  3. OXASCAND 15 MG TABLETT [Suspect]
     Active Substance: OXAZEPAM
     Indication: NERVOUSNESS
     Route: 065
  4. OXASCAND 15 MG TABLETT [Suspect]
     Active Substance: OXAZEPAM
     Indication: ANXIETY
     Route: 065
     Dates: start: 20171018

REACTIONS (1)
  - Drug ineffective [Not Recovered/Not Resolved]

NARRATIVE: CASE EVENT DATE: 20171019
